FAERS Safety Report 24612661 (Version 1)
Quarter: 2024Q4

REPORT INFORMATION
  Report Type: Report from Study
  Country: SA (occurrence: SA)
  Receive Date: 20241113
  Receipt Date: 20241113
  Transmission Date: 20250115
  Serious: Yes (Hospitalization, Other)
  Sender: GLAXOSMITHKLINE
  Company Number: SA-GLAXOSMITHKLINE INC-SA2023EME174153

PATIENT

DRUGS (1)
  1. MEPOLIZUMAB [Suspect]
     Active Substance: MEPOLIZUMAB
     Indication: Asthma
     Dosage: 100 MG, MO
     Dates: start: 20220725

REACTIONS (7)
  - Thrombosis [Unknown]
  - Dyspnoea [Unknown]
  - Vomiting [Unknown]
  - Cough [Not Recovered/Not Resolved]
  - Injection site bruising [Unknown]
  - Underdose [Unknown]
  - Accidental exposure to product [Unknown]

NARRATIVE: CASE EVENT DATE: 20231106
